FAERS Safety Report 11088944 (Version 1)
Quarter: 2015Q2

REPORT INFORMATION
  Report Type: Spontaneous
  Country: DE (occurrence: US)
  Receive Date: 20150504
  Receipt Date: 20150504
  Transmission Date: 20150821
  Serious: Yes (Other)
  Sender: FDA-Public Use
  Company Number: US-ALLERGAN-1507905US

PATIENT
  Sex: Male

DRUGS (1)
  1. ACULAR [Suspect]
     Active Substance: KETOROLAC TROMETHAMINE
     Dosage: UNK
     Route: 047

REACTIONS (2)
  - International normalised ratio increased [Unknown]
  - Haemorrhage [None]
